FAERS Safety Report 4696652-1 (Version None)
Quarter: 2005Q2

REPORT INFORMATION
  Report Type: 
  Country: None (occurrence: None)
  Receive Date: 20050616
  Receipt Date: 20050513
  Transmission Date: 20051028
  Serious: No
  Sender: FDA-Public Use
  Company Number: BDI-007192

PATIENT
  Age: 16 Year
  Sex: Female
  Weight: 77 kg

DRUGS (2)
  1. MULTIHANCE [Suspect]
     Indication: NUCLEAR MAGNETIC RESONANCE IMAGING
     Dosage: 12 ML ONCE IV
     Route: 042
     Dates: start: 20050511, end: 20050511
  2. MULTIHANCE [Suspect]
     Indication: OSTEOMYELITIS
     Dosage: 12 ML ONCE IV
     Route: 042
     Dates: start: 20050511, end: 20050511

REACTIONS (3)
  - DYSPNOEA [None]
  - PHARYNGOLARYNGEAL PAIN [None]
  - URTICARIA [None]
